FAERS Safety Report 17083980 (Version 3)
Quarter: 2020Q3

REPORT INFORMATION
  Report Type: Report from Study
  Country: IN (occurrence: IN)
  Receive Date: 20191127
  Receipt Date: 20200922
  Transmission Date: 20201102
  Serious: Yes (Other)
  Sender: FDA-Public Use
  Company Number: PHHY2019IN037902

PATIENT
  Age: 54 Year
  Sex: Female

DRUGS (8)
  1. PRUGO [Concomitant]
     Indication: PRURITUS
     Dosage: 25 MG, PRN
     Route: 048
  2. SCAPHO [Suspect]
     Active Substance: SECUKINUMAB
     Dosage: 300 MG, QMO
     Route: 058
     Dates: start: 20191014
  3. SCAPHO [Suspect]
     Active Substance: SECUKINUMAB
     Dosage: 300 MG, QMO
     Route: 058
     Dates: start: 20200214
  4. SCAPHO [Suspect]
     Active Substance: SECUKINUMAB
     Indication: PSORIASIS
     Dosage: 300 MG, QMO (VIAL)
     Route: 058
     Dates: start: 20181012
  5. SCAPHO [Suspect]
     Active Substance: SECUKINUMAB
     Dosage: 300 MG, QMO
     Route: 058
     Dates: start: 20191216
  6. SCAPHO [Suspect]
     Active Substance: SECUKINUMAB
     Dosage: UNK (7TH DOSE)
     Route: 065
     Dates: start: 20190110
  7. SCAPHO [Suspect]
     Active Substance: SECUKINUMAB
     Dosage: 300 MG, QMO (8TH DOSE)
     Route: 058
     Dates: start: 20190211
  8. SCAPHO [Suspect]
     Active Substance: SECUKINUMAB
     Dosage: 300 MG, QMO
     Route: 058
     Dates: start: 20191117

REACTIONS (9)
  - Injection site pain [Recovered/Resolved]
  - Skin lesion [Unknown]
  - Skin exfoliation [Unknown]
  - Swelling [Unknown]
  - Psoriasis area severity index increased [Unknown]
  - Product use in unapproved indication [Unknown]
  - COVID-19 [Unknown]
  - Injection site thrombosis [Not Recovered/Not Resolved]
  - Pain [Unknown]
